FAERS Safety Report 9178601 (Version 2)
Quarter: 2014Q2

REPORT INFORMATION
  Report Type: Spontaneous
  Country: IT (occurrence: IT)
  Receive Date: 20121029
  Receipt Date: 20131120
  Transmission Date: 20141212
  Serious: Yes (Other)
  Sender: FDA-Public Use
  Company Number: IT-TEVA-366783ISR

PATIENT
  Age: 78 Year
  Sex: Female

DRUGS (1)
  1. CARBOPLATINO TEVA [Suspect]
     Indication: OVARIAN CANCER
     Route: 042
     Dates: start: 20120612, end: 20120612

REACTIONS (3)
  - Rash [Recovered/Resolved]
  - Anal sphincter atony [Recovered/Resolved]
  - Dyspnoea [Recovered/Resolved]
